FAERS Safety Report 8935907 (Version 1)
Quarter: 2012Q4

REPORT INFORMATION
  Report Type: 
  Country: JP (occurrence: JP)
  Receive Date: 20121130
  Receipt Date: 20121130
  Transmission Date: 20130627
  Serious: Yes (Hospitalization)
  Sender: FDA-Public Use
  Company Number: JP-009507513-2012SP029615

PATIENT
  Age: 73 Year
  Sex: Female
  Weight: 50 kg

DRUGS (13)
  1. PEGINTRON [Suspect]
     Indication: CHRONIC HEPATITIS C
     Dosage: 1.5 Microgram per kilogram, qw
     Route: 058
     Dates: start: 20120327, end: 20120507
  2. REBETOL [Suspect]
     Indication: CHRONIC HEPATITIS C
     Dosage: 600 mg, QD
     Route: 048
     Dates: start: 20120327, end: 20120410
  3. REBETOL [Suspect]
     Dosage: 400 mg, QD
     Route: 048
     Dates: start: 20120411, end: 20120510
  4. REBETOL [Suspect]
     Dosage: 200 mg, QD
     Route: 048
     Dates: start: 20120511, end: 20120513
  5. TELAVIC [Suspect]
     Indication: CHRONIC HEPATITIS C
     Dosage: 2250 mg, QD
     Route: 048
     Dates: start: 20120327, end: 20120423
  6. TELAVIC [Suspect]
     Dosage: 1500 mg, QD
     Route: 048
     Dates: start: 20120424, end: 20120510
  7. TELAVIC [Suspect]
     Dosage: 1000 mg, QD
     Dates: start: 20120511, end: 20120511
  8. ADOAIR [Concomitant]
     Indication: ASTHMA
     Dosage: TOTAL DAILY DOSE: 4 DF. FORMULATION:INH
     Route: 055
  9. ALLERMIST [Concomitant]
     Indication: RHINITIS ALLERGIC
     Dosage: UNSPECIFIED FORMULATION: NDR; ADDITIONAL INFORMATION: q.s./ AND LEFT.
     Route: 045
  10. EBASTEL [Concomitant]
     Indication: PROPHYLAXIS
     Dosage: DAILY DOSE UNKNOWN; FORMULATION (UNSPECIFIED): POR;
     Route: 048
     Dates: start: 20120327
  11. NOVAMIN (PROCHLORPERAZINE MALEATE) [Concomitant]
     Indication: PRODUCT USED FOR UNKNOWN INDICATION
     Dosage: 3 DF, QD
     Route: 048
     Dates: start: 20120404
  12. MYSLEE [Concomitant]
     Indication: INSOMNIA
     Dosage: UNK UNK, prn
     Route: 048
     Dates: start: 20120507
  13. LAMISIL (TERBINAFINE) [Concomitant]
     Indication: TINEA PEDIS
     Dosage: 10 g, QD
     Route: 061
     Dates: start: 20120508

REACTIONS (3)
  - Decreased appetite [Recovered/Resolved]
  - Nausea [Recovered/Resolved]
  - Vomiting [Recovered/Resolved]
